FAERS Safety Report 5017377-9 (Version None)
Quarter: 2006Q2

REPORT INFORMATION
  Report Type: 
  Country: None (occurrence: None)
  Receive Date: 20060601
  Receipt Date: 20060601
  Transmission Date: 20061013
  Serious: Yes (Life-Threatening)
  Sender: FDA-Public Use
  Company Number: None

PATIENT
  Age: 72 Year
  Sex: Male
  Weight: 104 kg

DRUGS (20)
  1. FLUCONAZOLE [Suspect]
     Indication: CANDIDA SEPSIS
     Dosage: 400 MG   EVERY OTHER DAY   IV
     Route: 042
     Dates: start: 20060326, end: 20060329
  2. AMIODARONE [Suspect]
     Indication: ATRIAL FIBRILLATION
     Dosage: 200 MG   DAILY  PO
     Route: 048
     Dates: start: 20040501, end: 20060429
  3. DILTIAZEM [Concomitant]
  4. CLONAZEPAM [Concomitant]
  5. ASCORBIC ACID [Concomitant]
  6. AMLODIPINE [Concomitant]
  7. ALBUTEROL SULFATE AUTOHALER [Concomitant]
  8. PANTOPRAZOLE [Concomitant]
  9. METAMUCIL [Concomitant]
  10. SEVELAMER [Concomitant]
  11. COUMADIN [Concomitant]
  12. ONDANSETRON HCL [Concomitant]
  13. VICODIN [Concomitant]
  14. HYDRALAZINE HCL [Concomitant]
  15. FENOFIBRATE [Concomitant]
  16. HYDROCHLOROTHIAZIDE [Concomitant]
  17. ALLOPURINOL [Concomitant]
  18. HYOSCAMINE [Concomitant]
  19. DIGOXIN [Concomitant]
  20. VALSARTAN [Concomitant]

REACTIONS (12)
  - ACUTE PRERENAL FAILURE [None]
  - BODY TEMPERATURE INCREASED [None]
  - BUNDLE BRANCH BLOCK LEFT [None]
  - CANDIDIASIS [None]
  - DIALYSIS [None]
  - FLUSHING [None]
  - FUNGAEMIA [None]
  - HAEMATURIA [None]
  - RENAL FAILURE [None]
  - TORSADE DE POINTES [None]
  - VENTRICULAR TACHYCARDIA [None]
  - WHITE BLOOD CELL COUNT INCREASED [None]
